FAERS Safety Report 6303467-7 (Version None)
Quarter: 2009Q3

REPORT INFORMATION
  Report Type: 
  Country: None (occurrence: None)
  Receive Date: 20090810
  Receipt Date: 20090804
  Transmission Date: 20100115
  Serious: Yes (Death, Hospitalization, Other)
  Sender: FDA-Public Use
  Company Number: PHHY2009JP06924

PATIENT
  Sex: Male

DRUGS (4)
  1. DESFERAL [Suspect]
     Indication: MYELODYSPLASTIC SYNDROME
     Dosage: 250 MG, UNK
     Route: 030
     Dates: start: 20070514, end: 20080716
  2. BLOOD TRANSFUSION [Concomitant]
     Indication: MYELODYSPLASTIC SYNDROME
     Dosage: ONCE EVERY 1 TO 2 WEEKS
  3. MAXIPIME [Concomitant]
     Indication: PYREXIA
  4. FUNGUARD [Concomitant]

REACTIONS (11)
  - ABDOMINAL PAIN [None]
  - DISEASE PROGRESSION [None]
  - DISSEMINATED INTRAVASCULAR COAGULATION [None]
  - LEUKAEMIA [None]
  - LUNG NEOPLASM [None]
  - METASTASES TO KIDNEY [None]
  - METASTASES TO LIVER [None]
  - METASTASES TO LUNG [None]
  - MUCORMYCOSIS [None]
  - PNEUMONIA [None]
  - PYREXIA [None]
